FAERS Safety Report 5484661-4 (Version None)
Quarter: 2007Q4

REPORT INFORMATION
  Report Type: 
  Country: None (occurrence: None)
  Receive Date: 20071010
  Receipt Date: 20070924
  Transmission Date: 20080405
  Serious: Yes (Hospitalization, Other)
  Sender: FDA-Public Use
  Company Number: 2007US002297

PATIENT
  Age: 74 Year
  Sex: Male

DRUGS (14)
  1. PROGRAF [Suspect]
     Indication: RENAL TRANSPLANT
     Dosage: ORAL
     Route: 048
     Dates: start: 20050622
  2. MYCOPHENOLATE MOFETIL [Concomitant]
     Indication: RENAL TRANSPLANT
     Dosage: SEE IMAGE
     Route: 048
     Dates: start: 20050622, end: 20050630
  3. MYCOPHENOLATE MOFETIL [Concomitant]
     Indication: RENAL TRANSPLANT
     Dosage: SEE IMAGE
     Route: 048
     Dates: start: 20050701, end: 20050707
  4. MYCOPHENOLATE MOFETIL [Concomitant]
     Indication: RENAL TRANSPLANT
     Dosage: SEE IMAGE
     Route: 048
     Dates: start: 20050708, end: 20050820
  5. MYCOPHENOLATE MOFETIL [Concomitant]
     Indication: RENAL TRANSPLANT
     Dosage: SEE IMAGE
     Route: 048
     Dates: start: 20050622
  6. MYCOPHENOLATE MOFETIL [Concomitant]
     Indication: RENAL TRANSPLANT
     Dosage: SEE IMAGE
     Route: 048
     Dates: start: 20050823
  7. SOLU-MEDROL [Suspect]
     Indication: RENAL TRANSPLANT
     Dosage: 700 MG, UID/QD, IV NOS; 160 MG, UID/QD, IV NOS; 120 MG, UID/QD, IV NOS
     Route: 042
     Dates: start: 20050618, end: 20050618
  8. SOLU-MEDROL [Suspect]
     Indication: RENAL TRANSPLANT
     Dosage: 700 MG, UID/QD, IV NOS; 160 MG, UID/QD, IV NOS; 120 MG, UID/QD, IV NOS
     Route: 042
     Dates: start: 20050619, end: 20050619
  9. SOLU-MEDROL [Suspect]
     Indication: RENAL TRANSPLANT
     Dosage: 700 MG, UID/QD, IV NOS; 160 MG, UID/QD, IV NOS; 120 MG, UID/QD, IV NOS
     Route: 042
     Dates: start: 20050620, end: 20050620
  10. PREDNISONE TAB [Suspect]
     Indication: RENAL TRANSPLANT
     Dosage: 80 MG, UID/QD, ORAL;10 MG, UID/QD, ORAL
     Route: 048
     Dates: start: 20050621
  11. PEPCID [Concomitant]
  12. BACTRIM DS [Concomitant]
  13. MYCELEX [Concomitant]
  14. LASIX [Concomitant]

REACTIONS (4)
  - DIARRHOEA [None]
  - FREQUENT BOWEL MOVEMENTS [None]
  - HAEMORRHOIDS [None]
  - MICROSPORIDIA INFECTION [None]
